FAERS Safety Report 14139587 (Version 7)
Quarter: 2018Q3

REPORT INFORMATION
  Report Type: Report from Study
  Country: US (occurrence: US)
  Receive Date: 20171029
  Receipt Date: 20180927
  Transmission Date: 20181010
  Serious: Yes (Hospitalization, Other)
  Sender: FDA-Public Use
  Company Number: PHEH2017US034453

PATIENT
  Age: 73 Year
  Sex: Male
  Weight: 113 kg

DRUGS (2)
  1. COSENTYX [Suspect]
     Active Substance: SECUKINUMAB
     Indication: PSORIASIS
     Dosage: 300 MG, QMO (EVERY 4 WEEKS)
     Route: 058
     Dates: start: 20171013
  2. COSENTYX [Suspect]
     Active Substance: SECUKINUMAB
     Indication: PSORIATIC ARTHROPATHY
     Dosage: 300 MG, QMO (EVERY 4 WEEKS)
     Route: 058
     Dates: start: 201708

REACTIONS (10)
  - Urinary tract infection [Unknown]
  - Atrioventricular block [Unknown]
  - Skin discolouration [Unknown]
  - Haematuria [Unknown]
  - Cellulitis [Unknown]
  - Localised infection [Unknown]
  - Cholecystitis infective [Unknown]
  - Feeling hot [Unknown]
  - Dysuria [Unknown]
  - Psoriasis [Unknown]

NARRATIVE: CASE EVENT DATE: 20180716
